FAERS Safety Report 23028304 (Version 4)
Quarter: 2023Q4

REPORT INFORMATION
  Report Type: Report from Study
  Country: CA (occurrence: CA)
  Receive Date: 20231004
  Receipt Date: 20231113
  Transmission Date: 20240110
  Serious: Yes (Other)
  Sender: FDA-Public Use
  Company Number: CA-JNJFOC-20230350378

PATIENT
  Age: 5 Decade
  Sex: Female
  Weight: 62 kg

DRUGS (2)
  1. REMICADE [Suspect]
     Active Substance: INFLIXIMAB
     Indication: Crohn^s disease
     Dosage: ON 18-MAR-2023, THE PATIENT RECEIVED 105TH INFLIXIMAB INFUSION OF DOSE 400 MG AND PARTIAL HARVEY-BRA
     Route: 041
     Dates: start: 20140306
  2. REMICADE [Suspect]
     Active Substance: INFLIXIMAB
     Indication: Colitis ulcerative
     Dosage: ON 27-SEP-2023, THE PATIENT RECEIVED 111TH LATEST INFUSION OF 400 MG AND PARTIAL HARVEY-BRADSHAW COM
     Route: 041

REACTIONS (14)
  - Melaena [Recovering/Resolving]
  - Nasopharyngitis [Recovered/Resolved]
  - Suspected COVID-19 [Recovered/Resolved]
  - Pharyngitis streptococcal [Recovered/Resolved]
  - Abdominal distension [Recovering/Resolving]
  - Illness [Unknown]
  - Malaise [Unknown]
  - Artificial crown procedure [Unknown]
  - Chest discomfort [Recovering/Resolving]
  - Abdominal discomfort [Unknown]
  - Abdominal pain [Not Recovered/Not Resolved]
  - Diarrhoea [Not Recovered/Not Resolved]
  - Back pain [Not Recovered/Not Resolved]
  - Frequent bowel movements [Unknown]

NARRATIVE: CASE EVENT DATE: 20200101
